FAERS Safety Report 14254455 (Version 1)
Quarter: 2017Q4

REPORT INFORMATION
  Report Type: Spontaneous
  Country: US (occurrence: US)
  Receive Date: 20171206
  Receipt Date: 20171206
  Transmission Date: 20180321
  Serious: No
  Sender: FDA-Public Use
  Company Number: US-PFIZER INC-2017514493

PATIENT
  Age: 78 Year
  Sex: Male
  Weight: 88 kg

DRUGS (7)
  1. PROCHLORPERAZINE. [Concomitant]
     Active Substance: PROCHLORPERAZINE
     Indication: NAUSEA
     Dosage: 10MG, TABLET, BY MOUTH/AS REQUIRED
     Route: 048
  2. NEURONTIN [Concomitant]
     Active Substance: GABAPENTIN
     Indication: NEUROPATHY PERIPHERAL
     Dosage: 100MG, CAPSULE, BY MOUTH, 3 TIMES A DAY
     Route: 048
  3. CARVEDILOL. [Concomitant]
     Active Substance: CARVEDILOL
     Dosage: TAKE IT TWICE A DAY, ONE IN THE AM AND ONE IN THE PM
     Route: 048
  4. FLUOROURACIL/FOLINIC ACID [Concomitant]
     Indication: COLORECTAL CANCER
     Dosage: 400MG OF THAT 5FU
  5. ATROPINE SULFATE/DIPHENOXYLATE HYDROCHLORIDE [Suspect]
     Active Substance: ATROPINE SULFATE\DIPHENOXYLATE HYDROCHLORIDE
     Indication: DIARRHOEA
     Dosage: 2.5MG, TABLET, BY MOUTH AS REQUIRED
     Route: 048
     Dates: start: 1999
  6. THYROXINE [Concomitant]
     Active Substance: LEVOTHYROXINE
     Indication: HYPOTHYROIDISM
     Dosage: 125MG, 250MG TOTAL DAILY DOSE/I TAKE IT ONCE A DAY TOTAL 2 TABLETS
     Route: 048
  7. AVASTIN [Concomitant]
     Active Substance: BEVACIZUMAB
     Dosage: UNK

REACTIONS (7)
  - Platelet count decreased [Unknown]
  - Feeling abnormal [Unknown]
  - Drug ineffective [Unknown]
  - Dyspnoea [Unknown]
  - Product use issue [Unknown]
  - Abdominal pain upper [Unknown]
  - Flushing [Unknown]
